FAERS Safety Report 16889243 (Version 1)
Quarter: 2019Q4

REPORT INFORMATION
  Report Type: Spontaneous
  Country: GB (occurrence: GB)
  Receive Date: 20191007
  Receipt Date: 20191007
  Transmission Date: 20200122
  Serious: Yes (Other)
  Sender: FDA-Public Use
  Company Number: GB-GLAXOSMITHKLINE-GB2019GSK176592

PATIENT
  Sex: Female

DRUGS (7)
  1. TERBINAFINE. [Suspect]
     Active Substance: TERBINAFINE
     Indication: RASH PRURITIC
     Dosage: UNK
     Route: 048
  2. METHOTREXATE. [Concomitant]
     Active Substance: METHOTREXATE
     Indication: SYSTEMIC LUPUS ERYTHEMATOSUS
     Dosage: UNK
  3. PREDNISOLONE. [Suspect]
     Active Substance: PREDNISOLONE
     Indication: SYSTEMIC LUPUS ERYTHEMATOSUS
     Dosage: UNK
  4. TERBINAFINE. [Suspect]
     Active Substance: TERBINAFINE
     Indication: SKIN LESION
  5. PREDNISOLONE. [Suspect]
     Active Substance: PREDNISOLONE
     Indication: ARTHRITIS
  6. TERBINAFINE. [Suspect]
     Active Substance: TERBINAFINE
     Indication: SKIN EXFOLIATION
     Dosage: UNK
     Route: 061
  7. METHOTREXATE. [Concomitant]
     Active Substance: METHOTREXATE
     Indication: ARTHRITIS

REACTIONS (8)
  - Skin exfoliation [Unknown]
  - Rash pruritic [Unknown]
  - Dermatophytosis [Unknown]
  - Skin lesion [Unknown]
  - Drug ineffective [Unknown]
  - Drug resistance [Unknown]
  - Body tinea [Unknown]
  - Pathogen resistance [Unknown]

NARRATIVE: CASE EVENT DATE: 2018
